FAERS Safety Report 25049786 (Version 1)
Quarter: 2025Q1

REPORT INFORMATION
  Report Type: Spontaneous
  Country: FR (occurrence: FR)
  Receive Date: 20250307
  Receipt Date: 20250307
  Transmission Date: 20250409
  Serious: Yes (Other)
  Sender: RANBAXY
  Company Number: FR-EMA-DD-20250116-7482663-050540

PATIENT
  Age: 59 Year
  Sex: Female

DRUGS (9)
  1. KETOPROFEN [Suspect]
     Active Substance: KETOPROFEN
     Indication: Product used for unknown indication
     Route: 065
     Dates: start: 20110209
  2. MORPHINE [Suspect]
     Active Substance: MORPHINE
     Indication: Product used for unknown indication
     Route: 058
     Dates: start: 20110209
  3. LOVENOX [Suspect]
     Active Substance: ENOXAPARIN SODIUM
     Indication: Product used for unknown indication
     Route: 057
     Dates: start: 20110209
  4. ACUPAN [Suspect]
     Active Substance: NEFOPAM HYDROCHLORIDE
     Indication: Product used for unknown indication
     Route: 040
     Dates: start: 20110209
  5. CEFAZOLIN SODIUM [Suspect]
     Active Substance: CEFAZOLIN SODIUM
     Indication: Product used for unknown indication
     Route: 040
     Dates: start: 20110209
  6. ESOMEPRAZOLE [Suspect]
     Active Substance: ESOMEPRAZOLE
     Indication: Product used for unknown indication
     Route: 048
     Dates: start: 20110209
  7. LEVOTHYROXINE [Concomitant]
     Active Substance: LEVOTHYROXINE
     Indication: Product used for unknown indication
     Route: 065
  8. METFORMIN [Concomitant]
     Active Substance: METFORMIN HYDROCHLORIDE
     Indication: Type 2 diabetes mellitus
     Route: 048
  9. PRAVASTATIN [Concomitant]
     Active Substance: PRAVASTATIN
     Indication: Product used for unknown indication
     Route: 065

REACTIONS (2)
  - Symmetrical drug-related intertriginous and flexural exanthema [Recovered/Resolved]
  - Skin test negative [Unknown]

NARRATIVE: CASE EVENT DATE: 20110212
